FAERS Safety Report 17989247 (Version 3)
Quarter: 2020Q4

REPORT INFORMATION
  Report Type: Spontaneous
  Country: US (occurrence: US)
  Receive Date: 20200707
  Receipt Date: 20201026
  Transmission Date: 20210113
  Serious: No
  Sender: FDA-Public Use
  Company Number: US-AMGEN-USA-20200400277

PATIENT
  Age: 30 Year
  Sex: Female

DRUGS (2)
  1. OTEZLA [Suspect]
     Active Substance: APREMILAST
     Indication: PSORIASIS
     Dosage: 30 MILLIGRAM, BID
     Route: 048
     Dates: start: 201810
  2. OTEZLA [Suspect]
     Active Substance: APREMILAST
     Dosage: 30 MILLIGRAM, BID
     Route: 048
     Dates: start: 20200101

REACTIONS (7)
  - Haemorrhoids [Unknown]
  - Diarrhoea [Unknown]
  - Abdominal discomfort [Unknown]
  - Human papilloma virus test positive [Recovered/Resolved]
  - Constipation [Unknown]
  - Abdominal pain upper [Unknown]
  - Precancerous cells present [Unknown]

NARRATIVE: CASE EVENT DATE: 201810
